FAERS Safety Report 6377593-0 (Version None)
Quarter: 2009Q3

REPORT INFORMATION
  Report Type: 
  Country: None (occurrence: None)
  Receive Date: 20090923
  Receipt Date: 20090923
  Transmission Date: 20100115
  Serious: Yes (Hospitalization)
  Sender: FDA-Public Use
  Company Number: None

PATIENT
  Age: 60 Year
  Sex: Female
  Weight: 61.5 kg

DRUGS (6)
  1. HYDROMORPHONE [Suspect]
     Indication: PAIN
     Dosage: 4MG, Q3H, PO PRIOR TO 6/13/09
     Route: 048
     Dates: end: 20090613
  2. DIPHENHYCLRAMINE [Concomitant]
  3. ONDANSETRON [Concomitant]
  4. DOCUSATE [Concomitant]
  5. SENNA [Concomitant]
  6. HEPARIN [Concomitant]

REACTIONS (1)
  - SOMNOLENCE [None]
